FAERS Safety Report 11370213 (Version 1)
Quarter: 2015Q3

REPORT INFORMATION
  Report Type: Spontaneous
  Country: US (occurrence: US)
  Receive Date: 20150812
  Receipt Date: 20150812
  Transmission Date: 20151125
  Serious: No
  Sender: FDA-Public Use
  Company Number: US-JNJFOC-20150800404

PATIENT
  Sex: Female

DRUGS (20)
  1. GENERIC FENTANYL [Suspect]
     Active Substance: FENTANYL
     Indication: INTERVERTEBRAL DISC DEGENERATION
     Route: 062
  2. DURAGESIC [Suspect]
     Active Substance: FENTANYL
     Indication: SCIATICA
     Route: 062
  3. GENERIC FENTANYL [Suspect]
     Active Substance: FENTANYL
     Indication: KYPHOSIS
     Route: 062
  4. DURAGESIC [Suspect]
     Active Substance: FENTANYL
     Indication: SCOLIOSIS
     Route: 062
     Dates: start: 2008
  5. DURAGESIC [Suspect]
     Active Substance: FENTANYL
     Indication: INTERVERTEBRAL DISC DEGENERATION
     Route: 062
     Dates: start: 2008
  6. DURAGESIC [Suspect]
     Active Substance: FENTANYL
     Indication: KYPHOSIS
     Route: 062
     Dates: start: 2008
  7. DURAGESIC [Suspect]
     Active Substance: FENTANYL
     Indication: FIBROMYALGIA
     Route: 062
  8. DURAGESIC [Suspect]
     Active Substance: FENTANYL
     Indication: FIBROMYALGIA
     Route: 062
     Dates: start: 2008
  9. GENERIC FENTANYL [Suspect]
     Active Substance: FENTANYL
     Indication: SCOLIOSIS
     Route: 062
  10. DURAGESIC [Suspect]
     Active Substance: FENTANYL
     Indication: SCIATICA
     Route: 062
     Dates: start: 2008
  11. GENERIC FENTANYL [Suspect]
     Active Substance: FENTANYL
     Indication: SCIATICA
     Route: 062
  12. GENERIC FENTANYL [Suspect]
     Active Substance: FENTANYL
     Indication: INTERVERTEBRAL DISC DEGENERATION
     Route: 062
  13. GENERIC FENTANYL [Suspect]
     Active Substance: FENTANYL
     Indication: SCIATICA
     Route: 062
  14. GENERIC FENTANYL [Suspect]
     Active Substance: FENTANYL
     Indication: FIBROMYALGIA
     Route: 062
  15. GENERIC FENTANYL [Suspect]
     Active Substance: FENTANYL
     Indication: SCOLIOSIS
     Route: 062
  16. GENERIC FENTANYL [Suspect]
     Active Substance: FENTANYL
     Indication: FIBROMYALGIA
     Route: 062
  17. DURAGESIC [Suspect]
     Active Substance: FENTANYL
     Indication: INTERVERTEBRAL DISC DEGENERATION
     Route: 062
  18. DURAGESIC [Suspect]
     Active Substance: FENTANYL
     Indication: KYPHOSIS
     Route: 062
  19. GENERIC FENTANYL [Suspect]
     Active Substance: FENTANYL
     Indication: KYPHOSIS
     Route: 062
  20. DURAGESIC [Suspect]
     Active Substance: FENTANYL
     Indication: SCOLIOSIS
     Route: 062

REACTIONS (9)
  - Rhinorrhoea [Unknown]
  - Sneezing [Unknown]
  - Body height decreased [Unknown]
  - Product quality issue [Unknown]
  - Intentional product use issue [Unknown]
  - Product packaging issue [None]
  - Withdrawal syndrome [Unknown]
  - Drug administered at inappropriate site [Unknown]
  - Drug ineffective [Unknown]
